FAERS Safety Report 14903411 (Version 1)
Quarter: 2018Q2

REPORT INFORMATION
  Report Type: Spontaneous
  Country: HR (occurrence: HR)
  Receive Date: 20180516
  Receipt Date: 20180516
  Transmission Date: 20180711
  Serious: Yes (Other)
  Sender: FDA-Public Use
  Company Number: HR-MYLANLABS-2018M1031899

PATIENT
  Age: 2 Year
  Sex: Male

DRUGS (1)
  1. DALSY SIRUP [Suspect]
     Active Substance: IBUPROFEN
     Indication: PYREXIA
     Dosage: 7.5 ML, QD
     Route: 048
     Dates: start: 20180131, end: 20180131

REACTIONS (3)
  - Pallor [Recovered/Resolved]
  - Somnolence [Recovered/Resolved]
  - Hypothermia [Recovered/Resolved]

NARRATIVE: CASE EVENT DATE: 20180131
